FAERS Safety Report 24535500 (Version 1)
Quarter: 2024Q4

REPORT INFORMATION
  Report Type: Spontaneous
  Country: US (occurrence: None)
  Receive Date: 20241022
  Receipt Date: 20241022
  Transmission Date: 20250115
  Serious: Yes (Other)
  Sender: Public
  Company Number: None

PATIENT
  Age: 60 Year
  Sex: Female
  Weight: 93.15 kg

DRUGS (7)
  1. LAGEVRIO [Suspect]
     Active Substance: MOLNUPIRAVIR
     Dosage: OTHER QUANTITY : 4 CAPSULE(S);?FREQUENCY : EVERY 12 HOURS;?
     Route: 048
     Dates: start: 20241003, end: 20241008
  2. ANASTROZOLE [Concomitant]
     Active Substance: ANASTROZOLE
  3. LISINOPRIL [Concomitant]
     Active Substance: LISINOPRIL
  4. terzepatide/B12 [Concomitant]
  5. Centrum women 50 [Concomitant]
  6. VITAMIN D3 [Concomitant]
     Active Substance: CHOLECALCIFEROL
  7. align women^s dual action probiotic [Concomitant]

REACTIONS (2)
  - Photopsia [None]
  - Corneal disorder [None]

NARRATIVE: CASE EVENT DATE: 20241006
